FAERS Safety Report 7540803-8 (Version None)
Quarter: 2011Q2

REPORT INFORMATION
  Report Type: 
  Country: None (occurrence: None)
  Receive Date: 20110610
  Receipt Date: 20110608
  Transmission Date: 20111010
  Serious: Yes (Hospitalization, Other)
  Sender: FDA-Public Use
  Company Number: US-PFIZER INC-2011020767

PATIENT
  Sex: Male

DRUGS (10)
  1. PERCOCET [Concomitant]
     Indication: ANALGESIC THERAPY
     Dosage: UNK,
     Dates: start: 20050101, end: 20090101
  2. DIAZEPAM [Concomitant]
     Indication: MUSCLE RELAXANT THERAPY
     Dosage: UNK,
     Dates: start: 20050101
  3. ZANAFLEX [Concomitant]
     Indication: BACK INJURY
     Dosage: UNK,
     Dates: start: 20070201, end: 20071001
  4. CHANTIX [Suspect]
     Indication: SMOKING CESSATION THERAPY
     Dosage: STARTER PACK
     Dates: start: 20071001, end: 20080101
  5. SIMVASTATIN [Concomitant]
     Indication: BLOOD CHOLESTEROL INCREASED
     Dosage: UNK,
  6. VIAGRA [Concomitant]
     Indication: ERECTILE DYSFUNCTION
     Dosage: UNK
     Dates: start: 20060101
  7. CIALIS [Concomitant]
     Indication: ERECTILE DYSFUNCTION
     Dosage: UNK,
     Dates: start: 20060101
  8. HYDROMORPHONE [Concomitant]
     Indication: ANALGESIC THERAPY
     Dosage: UNK,
     Dates: start: 20050101
  9. FIORICET [Concomitant]
     Indication: ANALGESIC THERAPY
     Dosage: UNK,
     Dates: start: 20070501, end: 20080101
  10. METHADONE [Concomitant]
     Indication: ANALGESIC THERAPY
     Dosage: UNK,
     Dates: start: 20070701, end: 20071001

REACTIONS (5)
  - INTENTIONAL OVERDOSE [None]
  - SUICIDE ATTEMPT [None]
  - ANXIETY [None]
  - FEELING GUILTY [None]
  - DEPRESSION [None]
